FAERS Safety Report 24524905 (Version 1)
Quarter: 2024Q4

REPORT INFORMATION
  Report Type: Spontaneous
  Country: ES (occurrence: ES)
  Receive Date: 20241019
  Receipt Date: 20241019
  Transmission Date: 20250115
  Serious: Yes (Life-Threatening, Hospitalization, Other)
  Sender: CELLTRION
  Company Number: None

PATIENT

DRUGS (3)
  1. TRUXIMA [Suspect]
     Active Substance: RITUXIMAB-ABBS
     Indication: Rheumatoid arthritis
     Dosage: 500 MG, EVERY 6 MONTHS
     Route: 042
     Dates: start: 20190830, end: 20231015
  2. ORENCIA [Suspect]
     Active Substance: ABATACEPT
     Indication: Rheumatoid arthritis
     Dosage: 125 MG, EVERY 2 WEEKS
     Route: 058
     Dates: start: 20240202, end: 20240330
  3. BOSENTAN AUROVITAS [Concomitant]
     Indication: Scleroderma
     Dosage: 62.5 MG, QD
     Route: 048
     Dates: start: 20180410

REACTIONS (2)
  - Metastasis [Unknown]
  - Underdose [Unknown]

NARRATIVE: CASE EVENT DATE: 20240322
